FAERS Safety Report 6288345-4 (Version None)
Quarter: 2009Q3

REPORT INFORMATION
  Report Type: 
  Country: None (occurrence: None)
  Receive Date: 20090729
  Receipt Date: 20090722
  Transmission Date: 20100115
  Serious: Yes (Death, Other)
  Sender: FDA-Public Use
  Company Number: PHHY2008GB25509

PATIENT
  Age: 10 Month
  Sex: Male

DRUGS (2)
  1. CATAFLAM [Suspect]
     Indication: PYREXIA
     Dosage: 15 MG/ML
  2. AMOXICILLIN [Concomitant]
     Indication: PHARYNGITIS

REACTIONS (13)
  - BRAIN INJURY [None]
  - CARDIAC ARREST [None]
  - CHILD MALTREATMENT SYNDROME [None]
  - CHOKING [None]
  - CONTUSION [None]
  - GINGIVAL INFECTION [None]
  - HAEMORRHAGE [None]
  - HEAD INJURY [None]
  - LIP SWELLING [None]
  - LOSS OF CONSCIOUSNESS [None]
  - MOUTH INJURY [None]
  - RETINAL HAEMORRHAGE [None]
  - SCRATCH [None]
